FAERS Safety Report 8276427-7 (Version None)
Quarter: 2012Q2

REPORT INFORMATION
  Report Type: 
  Country: None (occurrence: None)
  Receive Date: 20120412
  Receipt Date: 20120410
  Transmission Date: 20120825
  Serious: Yes (Hospitalization)
  Sender: FDA-Public Use
  Company Number: DE-JNJFOC-20110105350

PATIENT
  Age: 78 Year
  Sex: Female
  Weight: 84 kg

DRUGS (10)
  1. ATACAND [Concomitant]
     Indication: HYPERTENSION
     Route: 048
     Dates: start: 20100701
  2. METHOTREXATE SODIUM [Suspect]
     Indication: RHEUMATOID ARTHRITIS
     Route: 058
  3. CALCIGEN D [Concomitant]
     Indication: OSTEOPOROSIS
     Route: 048
     Dates: start: 20030101
  4. HYDROCHLOROTHIAZIDE [Concomitant]
     Indication: HYPERTENSION
     Route: 048
     Dates: start: 20100701
  5. METOPROLOL TARTRATE AND HYDROCHLOROTHIAZIDE [Concomitant]
     Indication: HYPERTENSION
     Route: 048
     Dates: start: 20100701
  6. FOLIC ACID [Concomitant]
     Indication: PROPHYLAXIS
     Route: 048
     Dates: start: 20081001
  7. MARCUMAR [Concomitant]
     Indication: PULMONARY EMBOLISM
     Route: 048
     Dates: start: 20100601
  8. GOLIMUMAB [Suspect]
     Indication: RHEUMATOID ARTHRITIS
     Route: 058
     Dates: start: 20101213
  9. GOLIMUMAB [Suspect]
     Route: 058
     Dates: start: 20100719
  10. PREDNISOLONE [Suspect]
     Indication: RHEUMATOID ARTHRITIS
     Route: 058
     Dates: start: 20010801

REACTIONS (1)
  - ERYSIPELAS [None]
